FAERS Safety Report 13653521 (Version 1)
Quarter: 2017Q2

REPORT INFORMATION
  Report Type: Spontaneous
  Country: US (occurrence: US)
  Receive Date: 20170614
  Receipt Date: 20170614
  Transmission Date: 20170830
  Serious: No
  Sender: FDA-Public Use
  Company Number: US-ROCHE-1074895

PATIENT
  Sex: Male

DRUGS (2)
  1. XELODA [Suspect]
     Active Substance: CAPECITABINE
     Indication: PRODUCT USED FOR UNKNOWN INDICATION
     Dosage: ON 14 DAYS, OFF 14 DAYS
     Route: 065
  2. XELODA [Suspect]
     Active Substance: CAPECITABINE
     Dosage: 7 DAYS ON, 7 DAYS OFF
     Route: 065

REACTIONS (3)
  - Pruritus [Unknown]
  - Skin discolouration [Unknown]
  - Skin exfoliation [Unknown]
